FAERS Safety Report 10125882 (Version 1)
Quarter: 2014Q2

REPORT INFORMATION
  Report Type: Spontaneous
  Country: JP (occurrence: JP)
  Receive Date: 20140427
  Receipt Date: 20140427
  Transmission Date: 20141212
  Serious: Yes (Other)
  Sender: FDA-Public Use
  Company Number: PHJP2014JP000719

PATIENT
  Age: 19 Year
  Sex: Male
  Weight: 62 kg

DRUGS (5)
  1. CARBAMAZEPINE [Suspect]
     Indication: CONVULSION
     Route: 048
  2. PHENYTOIN [Suspect]
     Indication: CONVULSION
     Dosage: UNK
     Route: 048
  3. PHENYTOIN [Suspect]
     Dosage: UNK
     Route: 041
  4. GABAPENTIN [Suspect]
     Indication: CONVULSION
     Route: 048
  5. DIAZEPAM [Suspect]
     Indication: CONVULSION
     Route: 042

REACTIONS (1)
  - Hypocalcaemia [Recovering/Resolving]
